FAERS Safety Report 4283528-7 (Version None)
Quarter: 2004Q1

REPORT INFORMATION
  Report Type: 
  Country: None (occurrence: None)
  Receive Date: 20040120
  Receipt Date: 20030527
  Transmission Date: 20041129
  Serious: Yes (Other)
  Sender: FDA-Public Use
  Company Number: NSADSS2003024632

PATIENT
  Age: 30 Year
  Sex: Female
  Weight: 78.0187 kg

DRUGS (1)
  1. PARAGARD T380A (INTRAUTERINE CONTRACEPTIVE DEVICE) [Suspect]
     Indication: CONTRACEPTION
     Dosage: INTRAUTERINE
     Route: 015
     Dates: end: 20030522

REACTIONS (1)
  - IUCD COMPLICATION [None]
